FAERS Safety Report 8091023-2 (Version None)
Quarter: 2012Q1

REPORT INFORMATION
  Report Type: 
  Country: None (occurrence: None)
  Receive Date: 20120128
  Receipt Date: 20110810
  Transmission Date: 20120608
  Serious: No
  Sender: FDA-Public Use
  Company Number: US-ABBOTT-11P-163-0845296-00

PATIENT
  Sex: Male

DRUGS (2)
  1. HUMIRA [Suspect]
     Indication: PSORIATIC ARTHROPATHY
     Dates: start: 20110201
  2. PREDNISONE TAB [Suspect]
     Indication: JOINT SWELLING

REACTIONS (3)
  - JOINT SWELLING [None]
  - ARTHRALGIA [None]
  - WEIGHT INCREASED [None]
